FAERS Safety Report 8702541 (Version 18)
Quarter: 2023Q4

REPORT INFORMATION
  Report Type: Spontaneous
  Country: US (occurrence: US)
  Receive Date: 20120803
  Receipt Date: 20231227
  Transmission Date: 20240110
  Serious: No
  Sender: FDA-Public Use
  Company Number: US-PFIZER INC-2012185444

PATIENT
  Age: 59 Year
  Sex: Female
  Weight: 56 kg

DRUGS (8)
  1. PREMARIN [Suspect]
     Active Substance: ESTROGENS, CONJUGATED
     Indication: Artificial menopause
     Dosage: UNK, 1X/DAY
     Dates: start: 2007
  2. PREMARIN [Suspect]
     Active Substance: ESTROGENS, CONJUGATED
     Dosage: 0.625 MG, DAILY
     Dates: start: 2013
  3. PREMARIN [Suspect]
     Active Substance: ESTROGENS, CONJUGATED
     Dosage: ALTERNATE DAY, (1/4 APPLICATOR 1 X EVERY OTHER DAY)
  4. PREMARIN [Suspect]
     Active Substance: ESTROGENS, CONJUGATED
     Dosage: PLACE 1G VAGINALLY DAILY.
     Route: 067
     Dates: start: 20231117
  5. PREMARIN [Suspect]
     Active Substance: ESTROGENS, CONJUGATED
     Dosage: 0.5 G, AS NEEDED
     Route: 067
  6. SYNTHROID [Concomitant]
     Active Substance: LEVOTHYROXINE SODIUM
     Indication: Hypothyroidism
     Dosage: 100 UG, 1X/DAY
  7. VOLTAREN [Concomitant]
     Active Substance: DICLOFENAC SODIUM
     Indication: Arthritis
     Dosage: UNK, AS NEEDED
     Route: 061
  8. ASPIRIN [Concomitant]
     Active Substance: ASPIRIN
     Dosage: 81 MG, 1X/DAY

REACTIONS (12)
  - Drug ineffective [Recovered/Resolved]
  - Therapeutic product effect decreased [Unknown]
  - Product dispensing error [Unknown]
  - Irregular sleep wake rhythm disorder [Unknown]
  - Muscle spasms [Unknown]
  - Hyperhidrosis [Unknown]
  - Hormone level abnormal [Not Recovered/Not Resolved]
  - Vulvovaginal discomfort [Not Recovered/Not Resolved]
  - Dry skin [Not Recovered/Not Resolved]
  - Disturbance in attention [Not Recovered/Not Resolved]
  - Hirsutism [Unknown]
  - Off label use [Unknown]

NARRATIVE: CASE EVENT DATE: 20120901
